FAERS Safety Report 8341414-7 (Version None)
Quarter: 2012Q2

REPORT INFORMATION
  Report Type: 
  Country: None (occurrence: None)
  Receive Date: 20120507
  Receipt Date: 20120430
  Transmission Date: 20120825
  Serious: Yes (Other)
  Sender: FDA-Public Use
  Company Number: US-BAYER-2012-042318

PATIENT
  Age: 76 Year
  Sex: Female
  Weight: 61 kg

DRUGS (5)
  1. CALCIUM CARBONATE [Concomitant]
  2. EVISTA [Concomitant]
  3. SIMVASTATIN [Concomitant]
  4. ALLEGRA [Concomitant]
  5. MULTI-VITAMINS [Suspect]
     Dosage: BOTTLE COUNT 200S
     Route: 048
     Dates: start: 20120101

REACTIONS (2)
  - FOREIGN BODY [None]
  - CHOKING [None]
